FAERS Safety Report 10102264 (Version 4)
Quarter: 2014Q3

REPORT INFORMATION
  Report Type: Spontaneous
  Country: US (occurrence: US)
  Receive Date: 20140424
  Receipt Date: 20140819
  Transmission Date: 20150326
  Serious: Yes (Hospitalization, Other)
  Sender: FDA-Public Use
  Company Number: US-009507513-1404USA012655

PATIENT
  Sex: Female
  Weight: 70.3 kg

DRUGS (1)
  1. JANUMET [Suspect]
     Active Substance: METFORMIN HYDROCHLORIDE\SITAGLIPTIN PHOSPHATE
     Indication: TYPE 2 DIABETES MELLITUS
     Dosage: 50-500MG, TWICE DAILY
     Route: 048
     Dates: start: 20111222, end: 20140401

REACTIONS (37)
  - Pancreatic carcinoma metastatic [Not Recovered/Not Resolved]
  - Pain [Not Recovered/Not Resolved]
  - Inflammation [Unknown]
  - Metastases to liver [Unknown]
  - Cholecystectomy [Unknown]
  - Anxiety [Unknown]
  - Sinusitis fungal [Unknown]
  - Pancreaticoduodenectomy [Unknown]
  - Encephalopathy [Recovered/Resolved]
  - Pneumobilia [Unknown]
  - Ascites [Unknown]
  - Clostridium difficile colitis [Unknown]
  - Metastases to peritoneum [Unknown]
  - Metastases to large intestine [Unknown]
  - Sepsis [Recovered/Resolved]
  - Pneumonia [Unknown]
  - Hypokalaemia [Unknown]
  - Anaemia macrocytic [Unknown]
  - Spinal fusion surgery [Unknown]
  - Hip surgery [Unknown]
  - Urinary tract infection [Unknown]
  - Hypoglycaemia [Unknown]
  - Pancreatic carcinoma recurrent [Unknown]
  - Radiotherapy [Unknown]
  - Balance disorder [Unknown]
  - Spondylolysis [Unknown]
  - Tumour invasion [Unknown]
  - Diarrhoea [Recovering/Resolving]
  - Lymphadenopathy [Unknown]
  - Sinus operation [Unknown]
  - Hepatitis B surface antibody positive [Unknown]
  - Procedural complication [Unknown]
  - Metastases to lymph nodes [Unknown]
  - Depression [Unknown]
  - Ankle operation [Unknown]
  - Intervertebral disc degeneration [Unknown]
  - Headache [Unknown]

NARRATIVE: CASE EVENT DATE: 20130519
